FAERS Safety Report 10530549 (Version 2)
Quarter: 2014Q4

REPORT INFORMATION
  Report Type: Spontaneous
  Country: FR (occurrence: FR)
  Receive Date: 20141021
  Receipt Date: 20141110
  Transmission Date: 20150528
  Serious: Yes (Other)
  Sender: FDA-Public Use
  Company Number: FR-PFIZER INC-2014288297

PATIENT
  Age: 71 Year
  Sex: Male

DRUGS (8)
  1. KARDEGIC [Concomitant]
     Active Substance: ASPIRIN LYSINE
     Dosage: 75 MG, UNK
  2. CRESTOR [Concomitant]
     Active Substance: ROSUVASTATIN CALCIUM
     Dosage: 10 MG, BED TIME
  3. LORAZEPAM. [Concomitant]
     Active Substance: LORAZEPAM
     Indication: ANXIETY
     Dosage: 2.5 MG, DAILY
  4. NATISPRAY [Concomitant]
     Active Substance: NITROGLYCERIN
     Indication: ANGINA PECTORIS
     Dosage: PUNCTUALLY
  5. ATENOLOL. [Suspect]
     Active Substance: ATENOLOL
     Indication: ANGINA PECTORIS
     Dosage: 100 MG, QAM
     Route: 048
     Dates: start: 1986, end: 2014
  6. ATENOLOL. [Suspect]
     Active Substance: ATENOLOL
     Dosage: 50 MG, UNK
     Route: 048
     Dates: start: 2014, end: 20141012
  7. LEVOTHYROX [Concomitant]
     Active Substance: LEVOTHYROXINE
     Dosage: 125 UG, DAILY
  8. ALFUZOSIN [Concomitant]
     Active Substance: ALFUZOSIN
     Dosage: 10 MG, DAILY

REACTIONS (2)
  - Suicidal ideation [Not Recovered/Not Resolved]
  - Erectile dysfunction [Not Recovered/Not Resolved]

NARRATIVE: CASE EVENT DATE: 20140925
